FAERS Safety Report 4948844-1 (Version None)
Quarter: 2006Q1

REPORT INFORMATION
  Report Type: 
  Country: None (occurrence: None)
  Receive Date: 20060321
  Receipt Date: 20060310
  Transmission Date: 20060701
  Serious: Yes (Hospitalization)
  Sender: FDA-Public Use
  Company Number: PHHO2006AR04265

PATIENT
  Sex: Female

DRUGS (1)
  1. ZELMAC / HTF 919A [Suspect]
     Indication: IRRITABLE BOWEL SYNDROME
     Dosage: UNK, BID
     Route: 048

REACTIONS (7)
  - HYPERSENSITIVITY [None]
  - HYSTERECTOMY [None]
  - INFECTION [None]
  - OOPHORECTOMY [None]
  - SALPINGECTOMY [None]
  - SURGERY [None]
  - SUTURE RELATED COMPLICATION [None]
